FAERS Safety Report 16634516 (Version 1)
Quarter: 2019Q3

REPORT INFORMATION
  Report Type: Spontaneous
  Country: CN (occurrence: CN)
  Receive Date: 20190726
  Receipt Date: 20190726
  Transmission Date: 20191004
  Serious: Yes (Hospitalization)
  Sender: FDA-Public Use
  Company Number: CN-DRREDDYS-GPV/CHN/19/0112237

PATIENT
  Age: 29 Year
  Sex: Male
  Weight: 67.5 kg

DRUGS (2)
  1. JIAPULE [Concomitant]
     Indication: ANXIETY
     Route: 048
     Dates: start: 20180731
  2. OLANZ (OLANZAPINE) [Suspect]
     Active Substance: OLANZAPINE
     Indication: PSYCHOTIC DISORDER
     Route: 048
     Dates: start: 20181231

REACTIONS (1)
  - Dysuria [Recovering/Resolving]

NARRATIVE: CASE EVENT DATE: 20190203
